FAERS Safety Report 25768190 (Version 1)
Quarter: 2025Q3

REPORT INFORMATION
  Report Type: Spontaneous
  Country: US (occurrence: US)
  Receive Date: 20250905
  Receipt Date: 20250905
  Transmission Date: 20251021
  Serious: No
  Sender: DOMPE FARMACEUTICI
  Company Number: US-FARMAPROD-202506-1872

PATIENT
  Sex: Female
  Weight: 52.16 kg

DRUGS (16)
  1. OXERVATE [Suspect]
     Active Substance: CENEGERMIN-BKBJ
     Indication: Neurotrophic keratopathy
     Route: 047
     Dates: start: 20250410, end: 20250604
  2. OXERVATE [Suspect]
     Active Substance: CENEGERMIN-BKBJ
     Route: 047
     Dates: start: 20250611
  3. CHOLECALCIFEROL CRYSTALS [Concomitant]
  4. CALCIUM [Concomitant]
     Active Substance: CALCIUM
  5. PANTOPRAZOLE SODIUM [Concomitant]
     Active Substance: PANTOPRAZOLE SODIUM
  6. DULOXETINE HYDROCHLORIDE [Concomitant]
     Active Substance: DULOXETINE HYDROCHLORIDE
  7. GABAPENTIN [Concomitant]
     Active Substance: GABAPENTIN
  8. POTASSIUM [Concomitant]
     Active Substance: POTASSIUM
  9. LOSARTAN POTASSIUM [Concomitant]
     Active Substance: LOSARTAN POTASSIUM
  10. ATORVASTATIN CALCIUM [Concomitant]
     Active Substance: ATORVASTATIN CALCIUM
  11. CLONAZEPAM [Concomitant]
     Active Substance: CLONAZEPAM
  12. MAGNESIUM [Concomitant]
     Active Substance: MAGNESIUM
  13. VITAMINS [Concomitant]
     Active Substance: VITAMINS
  14. ASCORBIC ACID [Concomitant]
     Active Substance: ASCORBIC ACID
  15. PROBIOTIC 5B [Concomitant]
  16. EZ TEARS VITAMIN [Concomitant]

REACTIONS (4)
  - Headache [Unknown]
  - Photophobia [Unknown]
  - Eye pain [Unknown]
  - Lacrimation increased [Unknown]
